FAERS Safety Report 10461793 (Version 2)
Quarter: 2014Q3

REPORT INFORMATION
  Report Type: Report from Study
  Country: DE (occurrence: DE)
  Receive Date: 20140918
  Receipt Date: 20140918
  Transmission Date: 20150326
  Serious: Yes (Hospitalization, Other)
  Sender: FDA-Public Use
  Company Number: DE-ASTELLAS-2014US012241

PATIENT
  Age: 15 Year
  Sex: Male

DRUGS (1)
  1. TACROLIMUS. [Suspect]
     Active Substance: TACROLIMUS
     Indication: DERMATITIS ATOPIC
     Dosage: 0.03 %, AS NEEDED
     Route: 061
     Dates: start: 20041130

REACTIONS (5)
  - Hand fracture [Unknown]
  - Wrist fracture [Unknown]
  - Hyphaema [Recovered/Resolved]
  - Corneal erosion [Recovered/Resolved]
  - Post concussion syndrome [Recovered/Resolved]

NARRATIVE: CASE EVENT DATE: 20140709
